FAERS Safety Report 5559794-4 (Version None)
Quarter: 2007Q4

REPORT INFORMATION
  Report Type: 
  Country: None (occurrence: None)
  Receive Date: 20071214
  Receipt Date: 20071015
  Transmission Date: 20080405
  Serious: No
  Sender: FDA-Public Use
  Company Number: US-ABBOTT-07P-163-0420954-00

PATIENT
  Sex: Female
  Weight: 153.6 kg

DRUGS (4)
  1. HUMIRA [Suspect]
     Indication: RHEUMATOID ARTHRITIS
     Route: 058
     Dates: start: 20040101, end: 20060101
  2. HUMIRA [Suspect]
     Indication: PSORIATIC ARTHROPATHY
  3. HUMIRA [Suspect]
     Indication: RHEUMATOID ARTHRITIS
     Route: 058
     Dates: start: 20060101
  4. HUMIRA [Suspect]
     Indication: PSORIATIC ARTHROPATHY

REACTIONS (4)
  - FLUSHING [None]
  - INJECTION SITE HAEMORRHAGE [None]
  - INJECTION SITE WARMTH [None]
  - PROCEDURAL COMPLICATION [None]
